FAERS Safety Report 12647751 (Version 1)
Quarter: 2016Q3

REPORT INFORMATION
  Report Type: Spontaneous
  Country: US (occurrence: None)
  Receive Date: 20160811
  Receipt Date: 20160811
  Transmission Date: 20161109
  Serious: No
  Sender: FDA-Public Use
  Company Number: None

PATIENT
  Sex: Male
  Weight: 55.79 kg

DRUGS (1)
  1. CAPECITABINE 1500MG MYLAN [Suspect]
     Active Substance: CAPECITABINE
     Indication: RECTAL CANCER
     Dosage: 1500MG BID X 14 DAYS PO
     Route: 048
     Dates: start: 20160609

REACTIONS (1)
  - Palmar-plantar erythrodysaesthesia syndrome [None]
